FAERS Safety Report 4427437-9 (Version None)
Quarter: 2004Q3

REPORT INFORMATION
  Report Type: 
  Country: None (occurrence: None)
  Receive Date: 20040812
  Receipt Date: 20040802
  Transmission Date: 20050211
  Serious: No
  Sender: FDA-Public Use
  Company Number: 04H-129-0269282-00

PATIENT

DRUGS (8)
  1. BUPIVACAINE HCL 0.5% INJECTION, USP, 20ML AMPULE (BUPIVACAINE HYDROCHL [Suspect]
     Indication: ANALGESIC EFFECT
     Dosage: 15-20 ML BOLUS, ONCE, INTRAPLEURAL
     Route: 034
  2. BUPIVACAINE HCL 0.25% INJECTION, USP, AMPULE (BUPIVACAINE HYDROCHLORID [Suspect]
     Indication: ANALGESIC EFFECT
     Dosage: 5-10 ML/HOUR, CONT. INFUSION, INTRAPLEURAL
     Route: 034
  3. METHOHEXITAL [Concomitant]
  4. SUCCINYLCHOLINE CHLORIDE [Concomitant]
  5. ISOFLURANE IN AIR WITH OXYGEN [Concomitant]
  6. FENTANYL [Concomitant]
  7. PIPECURONIUM [Concomitant]
  8. OXYGEN [Concomitant]

REACTIONS (1)
  - URINARY RETENTION [None]
